FAERS Safety Report 8044460-6 (Version None)
Quarter: 2011Q4

REPORT INFORMATION
  Report Type: 
  Country: None (occurrence: None)
  Receive Date: 20111202
  Receipt Date: 20110928
  Transmission Date: 20120403
  Serious: Yes (Life-Threatening, Hospitalization, Other)
  Sender: FDA-Public Use
  Company Number: 2011SP000376

PATIENT
  Age: 30 Year
  Sex: Female
  Weight: 58.9676 kg

DRUGS (4)
  1. XANAX [Concomitant]
  2. NUVARING [Suspect]
     Indication: CONTRACEPTION
     Dosage: QM
     Dates: start: 20060301, end: 20060401
  3. LEXAPRO [Concomitant]
  4. ABILIFY [Concomitant]

REACTIONS (6)
  - PULMONARY EMBOLISM [None]
  - ANXIETY [None]
  - STRESS [None]
  - DEPRESSION [None]
  - THROMBOSIS [None]
  - MIGRAINE [None]
